FAERS Safety Report 13664281 (Version 1)
Quarter: 2017Q2

REPORT INFORMATION
  Report Type: Spontaneous
  Country: TW (occurrence: TW)
  Receive Date: 20170619
  Receipt Date: 20170619
  Transmission Date: 20170830
  Serious: Yes (Death)
  Sender: FDA-Public Use
  Company Number: TW-PFIZER INC-2017261319

PATIENT
  Age: 69 Year
  Sex: Female

DRUGS (1)
  1. CRIZOTINIB [Suspect]
     Active Substance: CRIZOTINIB
     Indication: ADENOCARCINOMA
     Dosage: UNK
     Dates: start: 201601

REACTIONS (1)
  - Death [Fatal]

NARRATIVE: CASE EVENT DATE: 201701
